FAERS Safety Report 20206025 (Version 1)
Quarter: 2021Q4

REPORT INFORMATION
  Report Type: Other
  Country: DE (occurrence: DE)
  Receive Date: 20211220
  Receipt Date: 20211220
  Transmission Date: 20220303
  Serious: Yes (Hospitalization)
  Sender: FDA-Public Use
  Company Number: DE-MACLEODS PHARMACEUTICALS US LTD-MAC2021033751

PATIENT

DRUGS (7)
  1. ARIPIPRAZOLE [Suspect]
     Active Substance: ARIPIPRAZOLE
     Indication: Product used for unknown indication
     Dosage: 20 MILLIGRAM, QD (1-0-0-0)
     Route: 065
  2. OLANZAPINE [Suspect]
     Active Substance: OLANZAPINE
     Indication: Product used for unknown indication
     Dosage: 5 MILLIGRAM, QD, (1-0-0-0)
     Route: 065
  3. OLANZAPINE [Suspect]
     Active Substance: OLANZAPINE
     Indication: Product used for unknown indication
     Dosage: 20 MILLIGRAM, QD, (0-0-1-0)
     Route: 065
  4. PIPAMPERONE [Interacting]
     Active Substance: PIPAMPERONE
     Indication: Product used for unknown indication
     Dosage: 40 MILLIGRAM, BID (0.5-0-0-1)
     Route: 065
  5. Torsemide-ratiopharm [Concomitant]
     Indication: Product used for unknown indication
     Dosage: 0.5 DOSAGE FORM, QD, 5 MG, 0.5-0-0-0
     Route: 065
  6. Amlodipin-1A Pharma 5mg N [Concomitant]
     Indication: Product used for unknown indication
     Dosage: 2.5 MILLIGRAM, BID, , 5 MG, (0.5-0-0.5-0)
     Route: 065
  7. LEVOTHYROXINE SODIUM [Concomitant]
     Active Substance: LEVOTHYROXINE SODIUM
     Indication: Product used for unknown indication
     Dosage: 100 MICROGRAM, QD (1-0-0-0)
     Route: 065

REACTIONS (4)
  - Depressed level of consciousness [Unknown]
  - Syncope [Unknown]
  - Angina pectoris [Unknown]
  - Medication error [Unknown]
